FAERS Safety Report 18303867 (Version 5)
Quarter: 2021Q1

REPORT INFORMATION
  Report Type: Report from Study
  Country: US (occurrence: US)
  Receive Date: 20200923
  Receipt Date: 20210217
  Transmission Date: 20210419
  Serious: No
  Sender: FDA-Public Use
  Company Number: NVSC2020US258106

PATIENT
  Sex: Female

DRUGS (3)
  1. COSENTYX [Suspect]
     Active Substance: SECUKINUMAB
     Indication: PSORIASIS
     Dosage: 300 MG, QMO
     Route: 058
  2. COSENTYX [Suspect]
     Active Substance: SECUKINUMAB
     Route: 058
  3. NOVOCAINE [Suspect]
     Active Substance: PROCAINE
     Indication: PRODUCT USED FOR UNKNOWN INDICATION
     Dosage: UNK
     Route: 065

REACTIONS (10)
  - Limb injury [Unknown]
  - Humerus fracture [Recovering/Resolving]
  - Therapeutic response shortened [Unknown]
  - Swelling [Unknown]
  - Pain [Unknown]
  - Dental caries [Unknown]
  - Fall [Unknown]
  - Psoriasis [Unknown]
  - Inflammation [Unknown]
  - Salivary gland disorder [Unknown]
